FAERS Safety Report 9518524 (Version 1)
Quarter: 2013Q3

REPORT INFORMATION
  Report Type: Spontaneous
  Country: GB (occurrence: GB)
  Receive Date: 20130912
  Receipt Date: 20130912
  Transmission Date: 20140515
  Serious: Yes (Other)
  Sender: FDA-Public Use
  Company Number: GB-PFIZER INC-2011249365

PATIENT
  Age: 21 Year
  Sex: Male

DRUGS (1)
  1. CLINDAMYCIN HCL [Suspect]
     Dosage: 450 MG, 4X/DAY
     Route: 048
     Dates: start: 20110926, end: 20111005

REACTIONS (4)
  - Diarrhoea [Recovering/Resolving]
  - Palpitations [Recovering/Resolving]
  - Rash [Recovering/Resolving]
  - Dyspnoea [Recovering/Resolving]
